FAERS Safety Report 9566922 (Version 1)
Quarter: 2013Q3

REPORT INFORMATION
  Report Type: Spontaneous
  Country: US (occurrence: US)
  Receive Date: 20130930
  Receipt Date: 20130930
  Transmission Date: 20140515
  Serious: No
  Sender: FDA-Public Use
  Company Number: US-AMGEN-USASP2012060779

PATIENT
  Age: 59 Year
  Sex: Female
  Weight: 70.75 kg

DRUGS (6)
  1. ENBREL [Suspect]
     Indication: PRODUCT USED FOR UNKNOWN INDICATION
     Dosage: 50 MG/ML, QWK
  2. FOLIC ACID [Concomitant]
     Dosage: 20 MG, UNK
  3. MELOXICAM [Concomitant]
     Dosage: 15 MG, UNK
  4. METHOTREXATE [Concomitant]
     Dosage: 20 MG, UNK
  5. XANAX [Concomitant]
     Dosage: 1 MG, UNK
  6. WELLBUTRIN [Concomitant]
     Dosage: 100 MG, UNK

REACTIONS (5)
  - Dyspepsia [Unknown]
  - Musculoskeletal chest pain [Unknown]
  - Chest discomfort [Unknown]
  - Nausea [Unknown]
  - Fatigue [Unknown]
